FAERS Safety Report 23231020 (Version 1)
Quarter: 2023Q4

REPORT INFORMATION
  Report Type: Spontaneous
  Country: US (occurrence: US)
  Receive Date: 20231127
  Receipt Date: 20231127
  Transmission Date: 20240110
  Serious: Yes (Other)
  Sender: FDA-Public Use
  Company Number: US-SUN PHARMACEUTICAL INDUSTRIES LTD-2023R1-420403

PATIENT
  Age: 58 Year
  Sex: Female

DRUGS (2)
  1. TRIAMCINOLONE [Suspect]
     Active Substance: TRIAMCINOLONE
     Indication: Asthma
     Dosage: 8 INJ (40-80 MG) IN THE RIGHT ORBIT
     Route: 026
  2. TRIAMCINOLONE [Suspect]
     Active Substance: TRIAMCINOLONE
     Indication: Xanthogranuloma
     Dosage: 7 INJ (30-60 MG) IN THE LEFT ORBIT
     Route: 026

REACTIONS (1)
  - Condition aggravated [Unknown]
